FAERS Safety Report 11415839 (Version 1)
Quarter: 2015Q3

REPORT INFORMATION
  Report Type: Spontaneous
  Country: US (occurrence: None)
  Receive Date: 20150824
  Receipt Date: 20150824
  Transmission Date: 20151125
  Serious: No
  Sender: FDA-Public Use
  Company Number: None

PATIENT
  Age: 56 Year
  Sex: Male

DRUGS (6)
  1. TERBUTALINE [Concomitant]
     Active Substance: TERBUTALINE
  2. METFORMIN [Concomitant]
     Active Substance: METFORMIN HYDROCHLORIDE
  3. WARFARIN [Suspect]
     Active Substance: WARFARIN
     Indication: PRODUCT USED FOR UNKNOWN INDICATION
     Route: 048
     Dates: start: 20150717, end: 20150821
  4. MONTELUKAST [Concomitant]
     Active Substance: MONTELUKAST SODIUM
  5. AZELASTINE [Concomitant]
     Active Substance: AZELASTINE
  6. ATORVASTATIN [Concomitant]
     Active Substance: ATORVASTATIN

REACTIONS (3)
  - Product quality issue [None]
  - Product substitution issue [None]
  - International normalised ratio decreased [None]

NARRATIVE: CASE EVENT DATE: 20150821
